FAERS Safety Report 16382050 (Version 1)
Quarter: 2019Q2

REPORT INFORMATION
  Report Type: Spontaneous
  Country: US (occurrence: US)
  Receive Date: 20190425
  Receipt Date: 20190425
  Transmission Date: 20190711
  Serious: Yes (Hospitalization)
  Sender: FDA-Public Use
  Company Number: None

PATIENT
  Age: 72 Year
  Sex: Male

DRUGS (2)
  1. RIVAROXABAN [Suspect]
     Active Substance: RIVAROXABAN
     Indication: PULMONARY EMBOLISM
     Route: 048
     Dates: start: 20190318
  2. ASPIRIN. [Suspect]
     Active Substance: ASPIRIN
     Indication: CORONARY ARTERY DISEASE
     Route: 048
     Dates: start: 20170319

REACTIONS (6)
  - Normocytic anaemia [None]
  - Haemorrhage [None]
  - Retroperitoneal haematoma [None]
  - Renal haematoma [None]
  - Renal cyst [None]
  - Subdural haematoma [None]

NARRATIVE: CASE EVENT DATE: 20190416
